FAERS Safety Report 25490032 (Version 1)
Quarter: 2025Q2

REPORT INFORMATION
  Report Type: Spontaneous
  Country: CA (occurrence: CA)
  Receive Date: 20250628
  Receipt Date: 20250628
  Transmission Date: 20250716
  Serious: Yes (Other)
  Sender: CELLTRION
  Company Number: CA-PFIZER INC-202500126703

PATIENT

DRUGS (1)
  1. INFLECTRA [Suspect]
     Active Substance: INFLIXIMAB-DYYB
     Indication: Colitis ulcerative
     Route: 042
     Dates: start: 20250619

REACTIONS (3)
  - Blood pressure fluctuation [Unknown]
  - Somnolence [Unknown]
  - Dizziness [Unknown]

NARRATIVE: CASE EVENT DATE: 20250619
